FAERS Safety Report 6175011-9 (Version None)
Quarter: 2009Q2

REPORT INFORMATION
  Report Type: 
  Country: None (occurrence: None)
  Receive Date: 20090430
  Receipt Date: 20090423
  Transmission Date: 20091009
  Serious: Yes (Other)
  Sender: FDA-Public Use
  Company Number: PHHY2009BR12628

PATIENT
  Age: 76 Year
  Sex: Female

DRUGS (6)
  1. EXFORGE [Suspect]
     Indication: HYPERTENSION
     Dosage: 160 MG VALSARTAN/5 MG AMLODIPINE
     Dates: start: 20070101
  2. CENTRUM [Concomitant]
     Dosage: 1 TABLET PER DAY
  3. OMEPRAZOLE [Concomitant]
     Dosage: UNK
     Route: 048
     Dates: start: 20070101
  4. LANSOPRAZOLE [Concomitant]
     Dosage: UNK
     Route: 048
  5. ATENOLOL [Concomitant]
     Indication: PALPITATIONS
     Dosage: UNK
     Dates: start: 20070101
  6. RIVOTRIL [Concomitant]
     Indication: SEDATIVE THERAPY
     Dosage: UNK
     Route: 048

REACTIONS (7)
  - ALOPECIA [None]
  - ANXIETY [None]
  - BLOOD PRESSURE ABNORMAL [None]
  - OEDEMA PERIPHERAL [None]
  - PAIN IN EXTREMITY [None]
  - STRESS [None]
  - VISION CORRECTION OPERATION [None]
